FAERS Safety Report 7912139-4 (Version None)
Quarter: 2011Q4

REPORT INFORMATION
  Report Type: 
  Country: None (occurrence: None)
  Receive Date: 20111114
  Receipt Date: 20111111
  Transmission Date: 20120403
  Serious: Yes (Other)
  Sender: FDA-Public Use
  Company Number: US-PFIZER INC-2011277292

PATIENT
  Sex: Male
  Weight: 79 kg

DRUGS (2)
  1. NAVANE [Suspect]
     Indication: SCHIZOPHRENIA
     Dosage: 2 MG, 4X/DAY
     Route: 048
     Dates: start: 19750101
  2. NAVANE [Suspect]
     Indication: DEPRESSION

REACTIONS (3)
  - SUICIDAL IDEATION [None]
  - ABNORMAL DREAMS [None]
  - DRUG DOSE OMISSION [None]
